FAERS Safety Report 4422848-X (Version None)
Quarter: 2004Q3

REPORT INFORMATION
  Report Type: 
  Country: None (occurrence: None)
  Receive Date: 20040809
  Receipt Date: 20040809
  Transmission Date: 20050211
  Serious: Yes (Life-Threatening)
  Sender: FDA-Public Use
  Company Number: None

PATIENT
  Age: 64 Year
  Sex: Male
  Weight: 197 kg

DRUGS (9)
  1. DROTRECOGIN ALFA LILLY [Suspect]
     Indication: SEPSIS SYNDROME
     Dosage: 24 MCG/KG CONTINUOUS INTRAVENOUS
     Route: 042
     Dates: start: 20040512, end: 20040515
  2. PHENYLEPHRINE DRIP [Concomitant]
  3. FENTANYL DRIP [Concomitant]
  4. MIDAZOLAM DRIP [Concomitant]
  5. INSULIN DRIP [Concomitant]
  6. VANCOMYCIN [Concomitant]
  7. GATIFLOXACIN [Concomitant]
  8. APAP TAB [Concomitant]
  9. RANITIDINE [Concomitant]

REACTIONS (2)
  - HAEMATEMESIS [None]
  - HAEMOGLOBIN DECREASED [None]
